FAERS Safety Report 8970571 (Version 1)
Quarter: 2012Q4

REPORT INFORMATION
  Report Type: 
  Country: US (occurrence: US)
  Receive Date: 20121218
  Receipt Date: 20121218
  Transmission Date: 20130627
  Serious: No
  Sender: FDA-Public Use
  Company Number: US-BRISTOL-MYERS SQUIBB COMPANY-16508483

PATIENT
  Age: 61 Year
  Sex: Male
  Weight: 61 kg

DRUGS (4)
  1. ABILIFY [Suspect]
     Indication: SEASONAL AFFECTIVE DISORDER
     Dosage: Expiration Date: ^Discard after 06Apr2013^.
Abilify taken: 1 + a half weeks
  2. ABILIFY [Suspect]
     Indication: DEPRESSION
     Dosage: Expiration Date: ^Discard after 06Apr2013^.
Abilify taken: 1 + a half weeks
  3. ZOLOFT [Suspect]
     Indication: DEPRESSION
  4. ZOLOFT [Suspect]
     Indication: SEASONAL AFFECTIVE DISORDER

REACTIONS (3)
  - Increased appetite [Recovering/Resolving]
  - Weight increased [Recovering/Resolving]
  - Weight decreased [Recovering/Resolving]
